FAERS Safety Report 5362294-8 (Version None)
Quarter: 2007Q2

REPORT INFORMATION
  Report Type: 
  Country: None (occurrence: None)
  Receive Date: 20070619
  Receipt Date: 20070619
  Transmission Date: 20071010
  Serious: Yes (Life-Threatening)
  Sender: FDA-Public Use
  Company Number: A0657010A

PATIENT
  Age: 40 Year
  Sex: Female

DRUGS (1)
  1. WELLBUTRIN [Suspect]
     Indication: DEPRESSION
     Dosage: 150MG UNKNOWN
     Route: 048
     Dates: start: 20070506, end: 20070513

REACTIONS (2)
  - MUSCLE FATIGUE [None]
  - MYALGIA [None]
